FAERS Safety Report 6896970-2 (Version None)
Quarter: 2010Q3

REPORT INFORMATION
  Report Type: 
  Country: None (occurrence: None)
  Receive Date: 20100802
  Receipt Date: 20070312
  Transmission Date: 20110219
  Serious: No
  Sender: FDA-Public Use
  Company Number: US-PFIZER INC-2007020833

PATIENT
  Sex: Male
  Weight: 68 kg

DRUGS (10)
  1. LYRICA [Suspect]
     Indication: DIABETIC NEUROPATHY
     Dates: start: 20070214, end: 20070307
  2. ENALAPRIL [Concomitant]
  3. NORVASC [Concomitant]
  4. COREG [Concomitant]
     Indication: CARDIAC DISORDER
  5. CLONIDINE [Concomitant]
  6. HYTRIN [Concomitant]
  7. GLYBURIDE [Concomitant]
  8. FOLIC ACID [Concomitant]
  9. RESTORIL [Concomitant]
  10. VICODIN [Concomitant]

REACTIONS (2)
  - DIZZINESS [None]
  - OEDEMA PERIPHERAL [None]
